FAERS Safety Report 21460014 (Version 2)
Quarter: 2022Q4

REPORT INFORMATION
  Report Type: Spontaneous
  Country: US (occurrence: US)
  Receive Date: 20221014
  Receipt Date: 20221122
  Transmission Date: 20230113
  Serious: Yes (Hospitalization, Other)
  Sender: FDA-Public Use
  Company Number: US-PFIZER INC-PV202200082212

PATIENT
  Age: 76 Year
  Sex: Female

DRUGS (2)
  1. XELJANZ [Suspect]
     Active Substance: TOFACITINIB CITRATE
     Indication: Rheumatoid arthritis
     Dosage: 5 MG, 2X/DAY
     Route: 048
  2. XELJANZ [Suspect]
     Active Substance: TOFACITINIB CITRATE
     Dosage: 5 MG, 1X/DAY
     Route: 048

REACTIONS (10)
  - Dyspnoea [Unknown]
  - Full blood count abnormal [Unknown]
  - Renal failure [Unknown]
  - Renal impairment [Unknown]
  - Dysstasia [Unknown]
  - Gait disturbance [Unknown]
  - Hepatic function abnormal [Unknown]
  - Intervertebral disc disorder [Unknown]
  - Hypersomnia [Unknown]
  - Fatigue [Unknown]
